FAERS Safety Report 17487326 (Version 1)
Quarter: 2020Q1

REPORT INFORMATION
  Report Type: Spontaneous
  Country: US (occurrence: US)
  Receive Date: 20200302
  Receipt Date: 20200302
  Transmission Date: 20200409
  Serious: Yes (Hospitalization, Disabling)
  Sender: FDA-Public Use
  Company Number: None

PATIENT
  Age: 38 Year
  Sex: Female
  Weight: 112.5 kg

DRUGS (3)
  1. AIMOVIG [Suspect]
     Active Substance: ERENUMAB-AOOE
     Indication: MIGRAINE
     Dosage: ?          OTHER FREQUENCY:ONE OF A MONTH;?
     Route: 058
     Dates: start: 20200113, end: 20200213
  2. BENADRYL [Concomitant]
     Active Substance: DIPHENHYDRAMINE HYDROCHLORIDE
  3. ADVIL [Concomitant]
     Active Substance: IBUPROFEN

REACTIONS (8)
  - Alopecia [None]
  - Product complaint [None]
  - Constipation [None]
  - Post procedural complication [None]
  - Photosensitivity reaction [None]
  - Loss of personal independence in daily activities [None]
  - Injection site pain [None]
  - Migraine [None]

NARRATIVE: CASE EVENT DATE: 20200113
